FAERS Safety Report 4332751-1 (Version None)
Quarter: 2004Q1

REPORT INFORMATION
  Report Type: 
  Country: None (occurrence: None)
  Receive Date: 20040330
  Receipt Date: 20040322
  Transmission Date: 20041129
  Serious: Yes (Death, Life-Threatening, Hospitalization)
  Sender: FDA-Public Use
  Company Number: F01200400588

PATIENT
  Age: 62 Year
  Sex: Male

DRUGS (6)
  1. (OXALIPLATIN) - SOLUTION- 130 MG/M2 [Suspect]
     Indication: COLORECTAL CANCER METASTATIC
     Dosage: 130 MG/M2 Q3W, INTRAVENOUS NOS
     Route: 042
  2. CAPECITABINE - TABLET - 1000 MG/M2 [Suspect]
     Dosage: 1000 MG/M2 BID, ORAL
     Route: 048
  3. BLOKIUM DIU (ATENOLOL/CHLORTHALIDONE) [Concomitant]
  4. FORTASEC (LOPERAMIDE) [Concomitant]
  5. BOI K (POTASSIUM ASCORBATE) [Concomitant]
  6. PRIMPERAN (METCLOPRAMIDE) [Concomitant]

REACTIONS (14)
  - AGITATION [None]
  - BLOOD GLUCOSE INCREASED [None]
  - CONFUSIONAL STATE [None]
  - DEHYDRATION [None]
  - DIARRHOEA [None]
  - DISORIENTATION [None]
  - HYPOCALCAEMIA [None]
  - HYPOKALAEMIA [None]
  - HYPONATRAEMIA [None]
  - NAUSEA [None]
  - PLATELET COUNT DECREASED [None]
  - PROTHROMBIN LEVEL DECREASED [None]
  - SOMNOLENCE [None]
  - VOMITING [None]
